FAERS Safety Report 7725534-3 (Version None)
Quarter: 2011Q3

REPORT INFORMATION
  Report Type: 
  Country: None (occurrence: None)
  Receive Date: 20110902
  Receipt Date: 20110826
  Transmission Date: 20111222
  Serious: Yes (Death)
  Sender: FDA-Public Use
  Company Number: GB-GENZYME-FABR-1002114

PATIENT
  Sex: Female
  Weight: 62 kg

DRUGS (8)
  1. FABRAZYME [Suspect]
     Dosage: 30 MG, UNK
     Route: 042
     Dates: start: 20090902
  2. BETA-AGONIST INHALER [Concomitant]
     Indication: ASTHMA
     Dosage: 6X DAY
  3. FABRAZYME [Suspect]
     Dosage: 60 MG, UNK
     Dates: start: 20101124
  4. ASPIRIN [Concomitant]
     Indication: PRODUCT USED FOR UNKNOWN INDICATION
     Dosage: 75 MG, UNK
  5. FABRAZYME [Suspect]
     Dosage: 25 MG, UNK
     Route: 042
     Dates: start: 20100804
  6. FABRAZYME [Suspect]
     Indication: FABRY'S DISEASE
     Dosage: 60 MG, UNK
     Route: 042
     Dates: start: 20070423, end: 20110817
  7. ALLOPURINOL [Concomitant]
     Indication: PRODUCT USED FOR UNKNOWN INDICATION
     Dosage: 100 MG, UNK
  8. FABRAZYME [Suspect]
     Dosage: 20 MG, UNK
     Route: 042
     Dates: start: 20091028

REACTIONS (1)
  - DEATH [None]
